FAERS Safety Report 5227809-9 (Version None)
Quarter: 2007Q1

REPORT INFORMATION
  Report Type: 
  Country: None (occurrence: None)
  Receive Date: 20070202
  Receipt Date: 20070124
  Transmission Date: 20070707
  Serious: Yes (Hospitalization)
  Sender: FDA-Public Use
  Company Number: IT-PFIZER INC-2007006683

PATIENT
  Sex: Female

DRUGS (1)
  1. FELDENE [Suspect]
     Indication: ARTHRALGIA
     Route: 030
     Dates: start: 20070118, end: 20070118

REACTIONS (2)
  - ANAPHYLACTIC SHOCK [None]
  - RESPIRATORY FAILURE [None]
